FAERS Safety Report 7825721-X (Version None)
Quarter: 2011Q4

REPORT INFORMATION
  Report Type: 
  Country: None (occurrence: None)
  Receive Date: 20111019
  Receipt Date: 20111005
  Transmission Date: 20120403
  Serious: Yes (Other)
  Sender: FDA-Public Use
  Company Number: GB-ROCHE-GNE324103

PATIENT
  Sex: Male

DRUGS (2)
  1. LUCENTIS [Suspect]
     Route: 050
  2. LUCENTIS [Suspect]
     Indication: PRODUCT USED FOR UNKNOWN INDICATION
     Route: 050

REACTIONS (3)
  - FEMUR FRACTURE [None]
  - FALL [None]
  - LOWER LIMB FRACTURE [None]
